FAERS Safety Report 5620262-2 (Version None)
Quarter: 2008Q1

REPORT INFORMATION
  Report Type: 
  Country: None (occurrence: None)
  Receive Date: 20080208
  Receipt Date: 20080205
  Transmission Date: 20080703
  Serious: Yes (Hospitalization)
  Sender: FDA-Public Use
  Company Number: B0506512A

PATIENT
  Age: 12 Year
  Sex: Female

DRUGS (9)
  1. RELENZA [Suspect]
     Indication: INFLUENZA
     Dosage: 10MG TWICE PER DAY
     Route: 055
     Dates: start: 20080126, end: 20080128
  2. ASTOMIN [Concomitant]
     Dosage: 10MG THREE TIMES PER DAY
     Route: 048
  3. MUCODYNE [Concomitant]
     Dosage: 250MG THREE TIMES PER DAY
     Route: 048
  4. DASEN [Concomitant]
     Dosage: 10MG THREE TIMES PER DAY
     Route: 048
  5. POLARAMINE [Concomitant]
     Dosage: 1.5 PER DAY
     Route: 048
  6. CLARITHROMYCIN [Concomitant]
     Dosage: 200MG TWICE PER DAY
     Route: 048
  7. BRUFEN [Concomitant]
     Route: 048
  8. BIOFERMIN [Concomitant]
     Dosage: 3 PER DAY
     Route: 048
  9. NAUZELIN [Concomitant]
     Route: 065

REACTIONS (2)
  - HEARING IMPAIRED [None]
  - VISUAL DISTURBANCE [None]
